FAERS Safety Report 17405865 (Version 11)
Quarter: 2023Q4

REPORT INFORMATION
  Report Type: Other
  Country: CA (occurrence: None)
  Receive Date: 20200212
  Receipt Date: 20231004
  Transmission Date: 20240110
  Serious: Yes (Other)
  Sender: FDA-Public Use
  Company Number: CA-ROCHE-2506223

PATIENT
  Age: 62 Year
  Sex: Male

DRUGS (4)
  1. OCREVUS [Suspect]
     Active Substance: OCRELIZUMAB
     Indication: Primary progressive multiple sclerosis
     Dosage: 300 MG AT DAY 0 AND 14, THEN 600 MG EVERY 6 MONTH;
     Route: 042
     Dates: start: 20190722
  2. GABAPENTIN [Concomitant]
     Active Substance: GABAPENTIN
  3. MYRBETRIQ [Concomitant]
     Active Substance: MIRABEGRON
  4. GRAVOL [Concomitant]
     Active Substance: DIMENHYDRINATE

REACTIONS (10)
  - Vascular device infection [Recovering/Resolving]
  - Poor venous access [Unknown]
  - Vascular access site pain [Unknown]
  - Balance disorder [Not Recovered/Not Resolved]
  - Bone pain [Not Recovered/Not Resolved]
  - Memory impairment [Not Recovered/Not Resolved]
  - Vascular access site swelling [Recovered/Resolved]
  - Muscular weakness [Unknown]
  - Mobility decreased [Not Recovered/Not Resolved]
  - Rectal injury [Recovered/Resolved]

NARRATIVE: CASE EVENT DATE: 20191225
